FAERS Safety Report 17190248 (Version 2)
Quarter: 2020Q1

REPORT INFORMATION
  Report Type: Spontaneous
  Country: US (occurrence: US)
  Receive Date: 20191223
  Receipt Date: 20200109
  Transmission Date: 20200409
  Serious: Yes (Hospitalization, Other)
  Sender: FDA-Public Use
  Company Number: US-TEVA-2019-US-1156613

PATIENT
  Age: 20 Month
  Sex: Female

DRUGS (3)
  1. PREDNISONE. [Suspect]
     Active Substance: PREDNISONE
     Indication: INFANTILE SPASMS
     Route: 065
  2. VIGABATRIN. [Concomitant]
     Active Substance: VIGABATRIN
     Indication: INFANTILE SPASMS
     Dosage: HIGH-DOSE
     Route: 065
  3. ADRENOCORTICOTROPIC HORMONE [Suspect]
     Active Substance: CORTICOTROPIN
     Indication: INFANTILE SPASMS
     Dosage: DOSE: 150 U/M2; WEANED OVER 2 WEEKS AFTER 2 WEEKS OF TREATMENT AT FULL DOSE
     Route: 065

REACTIONS (4)
  - Paralysis [Recovering/Resolving]
  - Drug ineffective [Unknown]
  - Cushing^s syndrome [Unknown]
  - Epidural lipomatosis [Recovered/Resolved]
